FAERS Safety Report 11231601 (Version 1)
Quarter: 2015Q2

REPORT INFORMATION
  Report Type: Spontaneous
  Country: US (occurrence: None)
  Receive Date: 20150616
  Receipt Date: 20150616
  Transmission Date: 20150821
  Serious: Yes (Hospitalization)
  Sender: FDA-Public Use
  Company Number: 1491515

PATIENT
  Age: 63 Year
  Sex: Female

DRUGS (6)
  1. ACTEMRA [Suspect]
     Active Substance: TOCILIZUMAB
     Indication: RHEUMATOID ARTHRITIS
     Dosage: (1 IN 1 M), INTRAVENOUS (NOT OTHERWISE SPECIFIED)
     Route: 042
     Dates: start: 201010, end: 20130518
  2. TYLENOL [Concomitant]
     Active Substance: ACETAMINOPHEN
  3. CELEBREX [Concomitant]
     Active Substance: CELECOXIB
  4. CEPHALEXIN (CEPHALEXIN) [Concomitant]
  5. VANCOMYCIN (VANCOMYCIN)? [Concomitant]
  6. ARAVA [Concomitant]
     Active Substance: LEFLUNOMIDE

REACTIONS (2)
  - Joint swelling [None]
  - Staphylococcal infection [None]

NARRATIVE: CASE EVENT DATE: 201305
